FAERS Safety Report 12115103 (Version 1)
Quarter: 2016Q1

REPORT INFORMATION
  Report Type: Report from Study
  Country: FR (occurrence: FR)
  Receive Date: 20160225
  Receipt Date: 20160225
  Transmission Date: 20160526
  Serious: Yes (Death)
  Sender: FDA-Public Use
  Company Number: FR-SANOFI-AVENTIS-200913966EU

PATIENT
  Age: 45 Year
  Sex: Female
  Weight: 69 kg

DRUGS (9)
  1. ASPIRINE [Suspect]
     Active Substance: ASPIRIN
     Indication: PAIN
     Route: 048
     Dates: start: 20050512
  2. NICOPATCH [Concomitant]
     Active Substance: NICOTINE
     Indication: EX-TOBACCO USER
     Route: 062
     Dates: start: 20060718, end: 20070910
  3. SEGLOR [Suspect]
     Active Substance: DIHYDROERGOTAMINE MESYLATE
     Indication: HYPOTENSION
     Route: 048
     Dates: start: 20061205
  4. TIANEPTINE [Concomitant]
     Active Substance: TIANEPTINE
     Indication: DEPRESSION
     Route: 048
     Dates: start: 20050512, end: 200704
  5. ANTI-SMOKING AGENTS [Concomitant]
     Active Substance: UNSPECIFIED INGREDIENT
     Indication: EX-TOBACCO USER
     Route: 048
     Dates: start: 20070918, end: 200711
  6. EFFEXOR LP [Suspect]
     Active Substance: VENLAFAXINE HYDROCHLORIDE
     Indication: DEPRESSION
     Route: 048
     Dates: start: 200704
  7. TERIFLUNOMIDE [Suspect]
     Active Substance: TERIFLUNOMIDE
     Indication: MULTIPLE SCLEROSIS
     Route: 048
     Dates: start: 20080901
  8. ALPRAZOLAM. [Suspect]
     Active Substance: ALPRAZOLAM
     Indication: ANXIETY
     Route: 048
     Dates: start: 20050512
  9. METHYLPREDNISOLONE. [Concomitant]
     Active Substance: METHYLPREDNISOLONE
     Indication: MULTIPLE SCLEROSIS RELAPSE
     Route: 042
     Dates: start: 20070130, end: 20070201

REACTIONS (1)
  - Death [Fatal]

NARRATIVE: CASE EVENT DATE: 20090629
